FAERS Safety Report 23954546 (Version 1)
Quarter: 2024Q2

REPORT INFORMATION
  Report Type: Spontaneous
  Country: US (occurrence: None)
  Receive Date: 20240610
  Receipt Date: 20240610
  Transmission Date: 20240716
  Serious: Yes (Other)
  Sender: FDA-Public Use
  Company Number: US-ROCHE-3517687

PATIENT
  Age: 58 Year
  Sex: Female

DRUGS (1)
  1. PERJETA [Suspect]
     Active Substance: PERTUZUMAB
     Indication: Breast cancer female
     Dosage: SINGLE DOSE VIAL 420MG/14ML
     Route: 042
     Dates: start: 20230824

REACTIONS (1)
  - Infusion related reaction [Unknown]

NARRATIVE: CASE EVENT DATE: 20240227
